FAERS Safety Report 5453765-4 (Version None)
Quarter: 2007Q3

REPORT INFORMATION
  Report Type: 
  Country: None (occurrence: None)
  Receive Date: 20070917
  Receipt Date: 20070914
  Transmission Date: 20080115
  Serious: Yes (Hospitalization, Other)
  Sender: FDA-Public Use
  Company Number: US-BRISTOL-MYERS SQUIBB COMPANY-13908009

PATIENT
  Age: 20 Year
  Sex: Male

DRUGS (9)
  1. MEGESTROL ACETATE [Suspect]
  2. METHOTREXATE [Suspect]
  3. IFOSFAMIDE [Suspect]
  4. DOXORUBICIN HCL [Suspect]
  5. GEMCITABINE HCL [Suspect]
  6. RADIATION THERAPY [Suspect]
  7. FLUCONAZOLE [Concomitant]
  8. TRIMETHOPRIM + SULFAMETHOXAZOLE [Concomitant]
  9. MORPHINE [Concomitant]

REACTIONS (14)
  - ABDOMINAL MASS [None]
  - ABDOMINAL PAIN [None]
  - ADRENAL INSUFFICIENCY [None]
  - ANAEMIA [None]
  - BLOOD TESTOSTERONE DECREASED [None]
  - CANDIDIASIS [None]
  - DEPRESSED MOOD [None]
  - ERYTHEMA [None]
  - HYPOALBUMINAEMIA [None]
  - HYPONATRAEMIA [None]
  - MELAENA [None]
  - OEDEMA PERIPHERAL [None]
  - PYREXIA [None]
  - THROMBOCYTOPENIA [None]
